FAERS Safety Report 9070183 (Version 1)
Quarter: 2013Q1

REPORT INFORMATION
  Report Type: Report from Study
  Country: US (occurrence: US)
  Receive Date: 20130129
  Receipt Date: 20130129
  Transmission Date: 20140127
  Serious: No
  Sender: FDA-Public Use
  Company Number: US-ABBOTT-12P-163-0938875-00

PATIENT
  Age: 50 Year
  Sex: Female

DRUGS (7)
  1. HUMIRA 40 MG/0.8 ML PEN [Suspect]
     Indication: RHEUMATOID ARTHRITIS
     Dates: start: 20120328
  2. PREDNISONE [Concomitant]
     Indication: PRODUCT USED FOR UNKNOWN INDICATION
     Route: 048
  3. TRAZODONE [Concomitant]
     Indication: PRODUCT USED FOR UNKNOWN INDICATION
     Dosage: AT BEDTIME
  4. VESICARE [Concomitant]
     Indication: URINARY INCONTINENCE
     Dosage: 5MG DAILY
  5. POTASSIUM [Concomitant]
     Indication: PRODUCT USED FOR UNKNOWN INDICATION
     Route: 048
  6. XANAX [Concomitant]
     Indication: ANXIETY
  7. PERCOCET [Concomitant]
     Indication: PAIN
     Route: 048

REACTIONS (2)
  - Injection site pain [Recovered/Resolved]
  - Injection site pain [Recovered/Resolved]
